FAERS Safety Report 5127901-3 (Version None)
Quarter: 2006Q4

REPORT INFORMATION
  Report Type: 
  Country: None (occurrence: None)
  Receive Date: 20061016
  Receipt Date: 20061006
  Transmission Date: 20070319
  Serious: Yes (Other)
  Sender: FDA-Public Use
  Company Number: GB-ABBOTT-06P-167-0346233-00

PATIENT
  Age: 27 Year
  Sex: Male
  Weight: 55.9 kg

DRUGS (5)
  1. KALETRA [Suspect]
     Indication: DRUG USE FOR UNKNOWN INDICATION
     Route: 048
  2. KALETRA [Suspect]
     Indication: DRUG USE FOR UNKNOWN INDICATION
  3. KALETRA [Suspect]
  4. KIVEXIA [Concomitant]
     Indication: DRUG USE FOR UNKNOWN INDICATION
     Route: 048
     Dates: start: 20060731
  5. LOPERAMIDE [Concomitant]
     Indication: DRUG USE FOR UNKNOWN INDICATION
     Route: 048
     Dates: start: 20040101

REACTIONS (1)
  - SWOLLEN TONGUE [None]
